FAERS Safety Report 9410519 (Version 1)
Quarter: 2013Q3

REPORT INFORMATION
  Report Type: Spontaneous
  Country: JP (occurrence: JP)
  Receive Date: 20130719
  Receipt Date: 20130719
  Transmission Date: 20140515
  Serious: Yes (Hospitalization, Other)
  Sender: FDA-Public Use
  Company Number: JP-WATSON-2013-12164

PATIENT
  Age: 82 Year
  Sex: Male

DRUGS (6)
  1. CYCLOPHOSPHAMIDE (UNKNOWN) [Suspect]
     Indication: DIFFUSE LARGE B-CELL LYMPHOMA STAGE II
     Dosage: UNK
     Route: 065
  2. DOXORUBICIN (UNKNOWN) [Suspect]
     Indication: DIFFUSE LARGE B-CELL LYMPHOMA STAGE II
     Dosage: UNK
     Route: 065
  3. VINCRISTINE (UNKNOWN) [Suspect]
     Indication: DIFFUSE LARGE B-CELL LYMPHOMA STAGE II
     Dosage: UNK
     Route: 065
  4. PREDNISOLONE (UNKNOWN) [Suspect]
     Indication: DIFFUSE LARGE B-CELL LYMPHOMA STAGE II
     Dosage: UNK
     Route: 065
  5. RITUXIMAB [Suspect]
     Indication: DIFFUSE LARGE B-CELL LYMPHOMA STAGE II
     Dosage: UNK
     Route: 065
  6. VOGLIBOSE [Concomitant]
     Indication: TYPE 2 DIABETES MELLITUS
     Dosage: UNK
     Route: 065

REACTIONS (3)
  - Herpes zoster [Recovered/Resolved]
  - Hepatic failure [Recovered/Resolved]
  - Disseminated intravascular coagulation [Recovered/Resolved]
